FAERS Safety Report 11402969 (Version 1)
Quarter: 2015Q3

REPORT INFORMATION
  Report Type: Spontaneous
  Country: US (occurrence: US)
  Receive Date: 20150821
  Receipt Date: 20150821
  Transmission Date: 20151125
  Serious: No
  Sender: FDA-Public Use
  Company Number: US-ROCHE-1377056

PATIENT
  Age: 67 Year
  Sex: Male

DRUGS (2)
  1. PEGASYS [Suspect]
     Active Substance: PEGINTERFERON ALFA-2A
     Indication: PRODUCT USED FOR UNKNOWN INDICATION
     Route: 065
     Dates: start: 2012
  2. RIBAVIRIN. [Suspect]
     Active Substance: RIBAVIRIN
     Indication: PRODUCT USED FOR UNKNOWN INDICATION
     Dosage: FOR 48 WEEKS
     Route: 065
     Dates: start: 2012

REACTIONS (6)
  - Viral load increased [Unknown]
  - Device malfunction [Unknown]
  - Irritability [Unknown]
  - Disturbance in attention [Not Recovered/Not Resolved]
  - Depression [Unknown]
  - Memory impairment [Unknown]

NARRATIVE: CASE EVENT DATE: 20140330
